FAERS Safety Report 24107467 (Version 1)
Quarter: 2024Q3

REPORT INFORMATION
  Report Type: Spontaneous
  Country: US (occurrence: US)
  Receive Date: 20240718
  Receipt Date: 20240718
  Transmission Date: 20241016
  Serious: No
  Sender: AVERITAS
  Company Number: US-GRUNENTHAL-2024-115821

PATIENT
  Age: 71 Year
  Sex: Male

DRUGS (3)
  1. QUTENZA [Suspect]
     Active Substance: CAPSAICIN
     Indication: Diabetic neuropathy
     Dosage: 4 DOSAGE FORM, ONCE
     Route: 061
     Dates: start: 20230909, end: 20230909
  2. QUTENZA [Suspect]
     Active Substance: CAPSAICIN
     Dosage: 2 DOSAGE FORM, ONCE
     Route: 061
     Dates: start: 20230525, end: 20230525
  3. QUTENZA [Suspect]
     Active Substance: CAPSAICIN
     Dosage: 2 DOSAGE FORM, ONCE
     Route: 061
     Dates: start: 20230607, end: 20230607

REACTIONS (2)
  - Application site pain [Unknown]
  - Condition aggravated [Unknown]
